FAERS Safety Report 7671845-X (Version None)
Quarter: 2011Q3

REPORT INFORMATION
  Report Type: 
  Country: None (occurrence: None)
  Receive Date: 20110809
  Receipt Date: 20110805
  Transmission Date: 20111222
  Serious: Yes (Death)
  Sender: FDA-Public Use
  Company Number: GB-PFIZER INC-2011045503

PATIENT
  Age: 65 Year
  Sex: Male

DRUGS (8)
  1. APREPITANT [Suspect]
     Dosage: UNK
     Route: 042
     Dates: start: 20110225, end: 20110225
  2. ONDANSERTRON HYDROCHLORIDE [Suspect]
     Dosage: 8 MG, UNK
     Route: 048
  3. MORPHINE SULFATE [Suspect]
     Dosage: 30 MG, UNK
     Route: 048
  4. PEMETREXED [Suspect]
     Dosage: UNK
     Route: 042
     Dates: start: 20101221, end: 20110225
  5. CISPLATIN [Suspect]
     Dosage: UNK
     Route: 042
     Dates: start: 20101221, end: 20110225
  6. PARACETAMOL [Concomitant]
     Dosage: 500 MG-1000 MG
     Route: 048
  7. DALTEPARIN SODIUM [Suspect]
     Indication: LUNG NEOPLASM MALIGNANT
     Dosage: UNK
     Dates: start: 20101220, end: 20110225
  8. DEXAMETHASONE [Suspect]
     Dosage: 4 MG, UNK
     Route: 048
     Dates: end: 20110225

REACTIONS (3)
  - LUNG CANCER METASTATIC [None]
  - INFECTIOUS PERITONITIS [None]
  - LARGE INTESTINE PERFORATION [None]
